FAERS Safety Report 9070913 (Version 31)
Quarter: 2016Q3

REPORT INFORMATION
  Report Type: Spontaneous
  Country: US (occurrence: US)
  Receive Date: 20130129
  Receipt Date: 20160921
  Transmission Date: 20161109
  Serious: Yes (Death, Life-Threatening, Hospitalization, Other)
  Sender: FDA-Public Use
  Company Number: US-GLAXOSMITHKLINE-A1009064A

PATIENT
  Age: 36 Year
  Sex: Female
  Weight: 58 kg

DRUGS (17)
  1. FLOLAN [Suspect]
     Active Substance: EPOPROSTENOL SODIUM
     Dosage: UNK
     Dates: start: 20060621
  2. FLOLAN [Suspect]
     Active Substance: EPOPROSTENOL SODIUM
     Dosage: UNK
     Dates: start: 20060621
  3. LETAIRIS [Concomitant]
     Active Substance: AMBRISENTAN
     Dosage: 10 MG, 1D
     Route: 048
  4. FLOLAN [Suspect]
     Active Substance: EPOPROSTENOL SODIUM
     Indication: PULMONARY ARTERIAL HYPERTENSION
     Dosage: 119 NG/KG/MIN, CONCETRATION: 135,000 NG/ML, VIAL STRENGTH: 1.5 MG126 NG/KG/MIN 129 NG/KG/MIN, C[...]
     Route: 042
     Dates: start: 20060621
  5. FLOLAN [Suspect]
     Active Substance: EPOPROSTENOL SODIUM
     Dosage: UNK
     Dates: start: 20060621
  6. FLOLAN [Suspect]
     Active Substance: EPOPROSTENOL SODIUM
     Dosage: UNK
     Dates: start: 20060621
  7. FLOLAN [Suspect]
     Active Substance: EPOPROSTENOL SODIUM
     Indication: PULMONARY ARTERIAL HYPERTENSION
  8. REVATIO [Concomitant]
     Active Substance: SILDENAFIL CITRATE
     Indication: PRODUCT USED FOR UNKNOWN INDICATION
     Dosage: 60 MG, TID
     Route: 048
  9. FLOLAN [Suspect]
     Active Substance: EPOPROSTENOL SODIUM
     Dosage: 154 NG/KG/MIN
     Route: 042
  10. FLOLAN [Suspect]
     Active Substance: EPOPROSTENOL SODIUM
     Dosage: 161 NG/KG/MIN, CONTINUOUS
     Dates: start: 20100611
  11. COUMADIN [Concomitant]
     Active Substance: WARFARIN SODIUM
     Dosage: UNK
  12. FLOLAN [Suspect]
     Active Substance: EPOPROSTENOL SODIUM
     Dosage: UNK
     Dates: start: 20060621
  13. FLOLAN [Suspect]
     Active Substance: EPOPROSTENOL SODIUM
     Dosage: 156 NG/KG/MIN CONTINUOUSLY
  14. FLOLAN [Suspect]
     Active Substance: EPOPROSTENOL SODIUM
     Dosage: UNK
     Dates: start: 20060621
  15. FLOLAN [Suspect]
     Active Substance: EPOPROSTENOL SODIUM
     Dosage: 157 NG/KG/MIN
     Route: 042
  16. FLOLAN [Suspect]
     Active Substance: EPOPROSTENOL SODIUM
     Dosage: 159 DF, CO
     Dates: start: 20100611
  17. FLOLAN [Suspect]
     Active Substance: EPOPROSTENOL SODIUM
     Dosage: 164 NG/KG/MIN, CO
     Route: 042

REACTIONS (28)
  - Infusion site infection [Recovering/Resolving]
  - Lung infection [Unknown]
  - Right ventricular failure [Unknown]
  - Heart rate increased [Unknown]
  - Device related infection [Unknown]
  - Osteoporosis [Unknown]
  - Chronic kidney disease [Unknown]
  - Resuscitation [Unknown]
  - Gout [Unknown]
  - Acute respiratory failure [Unknown]
  - Cellulitis [Unknown]
  - Cardiac failure congestive [Unknown]
  - Hypotension [Unknown]
  - Hospitalisation [Unknown]
  - Respiratory failure [Unknown]
  - Emergency care [Unknown]
  - Pneumonia [Unknown]
  - Nausea [Unknown]
  - Catheter site extravasation [Unknown]
  - Drug dose omission [Unknown]
  - Death [Fatal]
  - Compression fracture [Unknown]
  - Dyspnoea [Unknown]
  - Fluid retention [Not Recovered/Not Resolved]
  - Vomiting [Unknown]
  - Chest wall abscess [Unknown]
  - Complication associated with device [Unknown]
  - Hospice care [Unknown]

NARRATIVE: CASE EVENT DATE: 20130114
